FAERS Safety Report 4332824-3 (Version None)
Quarter: 2004Q2

REPORT INFORMATION
  Report Type: 
  Country: None (occurrence: None)
  Receive Date: 20040406
  Receipt Date: 20040325
  Transmission Date: 20050107
  Serious: Yes (Life-Threatening, Other)
  Sender: FDA-Public Use
  Company Number: FR-BRISTOL-MYERS SQUIBB COMPANY-12550802

PATIENT
  Age: 55 Year
  Sex: Male

DRUGS (6)
  1. ENDOXAN [Suspect]
     Indication: NON-HODGKIN'S LYMPHOMA
     Route: 042
     Dates: start: 20030401
  2. ETOPOSIDE [Suspect]
     Indication: NON-HODGKIN'S LYMPHOMA
     Route: 042
     Dates: start: 20030401
  3. ADRIBLASTINE [Suspect]
     Indication: NON-HODGKIN'S LYMPHOMA
     Route: 042
     Dates: start: 20030401
  4. PREDNISONE [Suspect]
     Indication: NON-HODGKIN'S LYMPHOMA
     Dosage: D1 TO D5
     Route: 048
     Dates: start: 20030401
  5. MABTHERA [Suspect]
     Indication: NON-HODGKIN'S LYMPHOMA
     Route: 042
     Dates: start: 20030401
  6. PEG-INTRON [Suspect]
     Indication: NON-HODGKIN'S LYMPHOMA
     Dosage: D1 AND D8
     Route: 058
     Dates: start: 20030401, end: 20030401

REACTIONS (3)
  - GLIOBLASTOMA [None]
  - NEOPLASM MALIGNANT [None]
  - TREATMENT RELATED SECONDARY MALIGNANCY [None]
